FAERS Safety Report 4971111-7 (Version None)
Quarter: 2006Q1

REPORT INFORMATION
  Report Type: 
  Country: None (occurrence: None)
  Receive Date: 20060228
  Receipt Date: 20051123
  Transmission Date: 20060701
  Serious: Yes (Hospitalization)
  Sender: FDA-Public Use
  Company Number: PERI00205003942

PATIENT
  Age: 80 Year
  Sex: Male
  Weight: 79.3 kg

DRUGS (12)
  1. ACEON [Suspect]
     Indication: ILL-DEFINED DISORDER
     Dosage: 4 MILLIGRAM(S) QD ORAL DAILY DOSE: 4 MILLIGRAM(S)
     Route: 048
     Dates: start: 20050331, end: 20050406
  2. BIVALIRUDIN (BIVALIRUDIN) [Suspect]
     Indication: ILL-DEFINED DISORDER
     Dosage: 7.9 MILLIGRAM(S) DAILY INTRAVENOUS INJECTION DAILY DOSE: 7.9 MILLIGRAM(S), 11.9 MILLIGRAM(S) DAILY I
     Route: 042
     Dates: start: 20050328, end: 20050328
  3. BIVALIRUDIN (BIVALIRUDIN) [Suspect]
     Indication: ILL-DEFINED DISORDER
     Dosage: 7.9 MILLIGRAM(S) DAILY INTRAVENOUS INJECTION DAILY DOSE: 7.9 MILLIGRAM(S), 11.9 MILLIGRAM(S) DAILY I
     Route: 042
     Dates: start: 20050328, end: 20050328
  4. BIVALIRUDIN (BIVALIRUDIN) [Suspect]
     Indication: ILL-DEFINED DISORDER
     Dosage: 7.9 MILLIGRAM(S) DAILY INTRAVENOUS INJECTION DAILY DOSE: 7.9 MILLIGRAM(S), 11.9 MILLIGRAM(S) DAILY I
     Route: 042
     Dates: start: 20050328, end: 20050328
  5. BIVALIRUDIN (BIVALIRUDIN) [Suspect]
     Indication: ILL-DEFINED DISORDER
     Dosage: 7.9 MILLIGRAM(S) DAILY INTRAVENOUS INJECTION DAILY DOSE: 7.9 MILLIGRAM(S), 11.9 MILLIGRAM(S) DAILY I
     Route: 042
     Dates: start: 20050328, end: 20050328
  6. INTEGRILIN [Suspect]
     Indication: ILL-DEFINED DISORDER
     Dosage: 14 MILLIGRAM(S) DAILY INTRAVENOUS DAILY DOSE: 14 MILLIGRAM(S), 5.868 MILLIGRAM(S) DAILY INTRAVENOUS
     Route: 042
     Dates: start: 20050328, end: 20050328
  7. OPTIRAY 160 [Suspect]
     Indication: COMPUTERISED TOMOGRAM
     Dosage: 90 MILLILITRE(S) DAILY DOSE: 90 MILLILITRE(S)
     Dates: start: 20050402
  8. CLOPIDOGREL (CLOPIDOGREL) [Concomitant]
  9. ZETIA (ZETIA) [Concomitant]
  10. ZOCOR [Concomitant]
  11. COUMADIN [Concomitant]
  12. METOPROLOL SUCCINATE [Concomitant]

REACTIONS (1)
  - RENAL FAILURE [None]
